FAERS Safety Report 7648006-3 (Version None)
Quarter: 2011Q3

REPORT INFORMATION
  Report Type: 
  Country: None (occurrence: None)
  Receive Date: 20110801
  Receipt Date: 20110721
  Transmission Date: 20111222
  Serious: Yes (Other)
  Sender: FDA-Public Use
  Company Number: ZA-JNJFOC-20110104215

PATIENT
  Sex: Female

DRUGS (8)
  1. PLENISH-K [Concomitant]
     Indication: OEDEMA PERIPHERAL
     Dosage: 1 PER DAY
     Route: 065
     Dates: start: 20070101
  2. LASIX [Concomitant]
     Indication: OEDEMA PERIPHERAL
     Dosage: 1 PER DAY
     Route: 065
     Dates: start: 20070101
  3. ZOPIVANE [Concomitant]
     Indication: ANXIETY
     Route: 065
  4. PLENISH-K [Concomitant]
     Indication: FLUID RETENTION
     Dosage: 1 PER DAY
     Route: 065
     Dates: start: 20070101
  5. NOVOMIX [Concomitant]
     Indication: DIABETES MELLITUS
     Dosage: 30 UNITS IN THE MORNING AND 30 UNITS AT NIGHT.
     Route: 065
     Dates: start: 20080201
  6. ZETOMAX [Concomitant]
     Indication: DIABETES MELLITUS
     Dosage: 1 PER DAY
     Route: 065
     Dates: start: 20070101
  7. TRAMADOL HYDROCHLORIDE/ACETAMINOPHEN [Suspect]
     Indication: NEUROPATHY PERIPHERAL
     Dosage: ONE TABLET IN THE MORNING AND ONE  TABLET IN THE MORNING
     Route: 048
     Dates: start: 20110103, end: 20110112
  8. LASIX [Concomitant]
     Indication: FLUID RETENTION
     Dosage: 1 PER DAY
     Route: 065
     Dates: start: 20070101

REACTIONS (5)
  - FEAR [None]
  - VISUAL ACUITY REDUCED [None]
  - VISUAL IMPAIRMENT [None]
  - NERVOUSNESS [None]
  - ANXIETY [None]
